FAERS Safety Report 25531213 (Version 1)
Quarter: 2025Q3

REPORT INFORMATION
  Report Type: Other
  Country: AU (occurrence: AU)
  Receive Date: 20250708
  Receipt Date: 20250708
  Transmission Date: 20251021
  Serious: Yes (Other)
  Sender: SERVIER
  Company Number: AU-SERVIER-S25009031

PATIENT

DRUGS (3)
  1. ONCASPAR [Suspect]
     Active Substance: PEGASPARGASE
     Indication: B precursor type acute leukaemia
     Route: 065
  2. VINCRISTINE SULFATE [Suspect]
     Active Substance: VINCRISTINE SULFATE
     Indication: B precursor type acute leukaemia
     Route: 065
  3. DEXAMETHASONE [Suspect]
     Active Substance: DEXAMETHASONE
     Indication: B precursor type acute leukaemia
     Route: 065

REACTIONS (10)
  - Acute graft versus host disease in skin [Unknown]
  - Acute graft versus host disease in intestine [Unknown]
  - Chronic graft versus host disease oral [Unknown]
  - Chronic graft versus host disease in skin [Unknown]
  - Chronic graft versus host disease in lung [Unknown]
  - Seizure [Unknown]
  - Chloroma [Unknown]
  - Cushing^s syndrome [Unknown]
  - Growth failure [Unknown]
  - Ovarian failure [Unknown]
